FAERS Safety Report 15801462 (Version 1)
Quarter: 2019Q1

REPORT INFORMATION
  Report Type: Other
  Country: GB (occurrence: GB)
  Receive Date: 20190109
  Receipt Date: 20190109
  Transmission Date: 20190417
  Serious: Yes (Hospitalization, Other)
  Sender: FDA-Public Use
  Company Number: GB-STRIDES ARCOLAB LIMITED-2019SP000308

PATIENT
  Age: 49 Year
  Sex: Male

DRUGS (2)
  1. IBUPROFEN. [Suspect]
     Active Substance: IBUPROFEN
     Indication: SINUS PAIN
     Dosage: TWO THEN TWO MORE 2 HOURS LATER
     Route: 048
     Dates: start: 201812, end: 20181217
  2. ANADIN EXTRA [Suspect]
     Active Substance: ACETAMINOPHEN\ASPIRIN\CAFFEINE
     Indication: SINUS PAIN
     Dosage: 2 DF, UNKNOWN
     Route: 048
     Dates: start: 201812, end: 20181217

REACTIONS (3)
  - Lower gastrointestinal haemorrhage [Recovered/Resolved]
  - Syncope [Unknown]
  - Faeces discoloured [Unknown]

NARRATIVE: CASE EVENT DATE: 20181217
